FAERS Safety Report 11118253 (Version 4)
Quarter: 2015Q2

REPORT INFORMATION
  Report Type: Report from Study
  Country: US (occurrence: US)
  Receive Date: 20150518
  Receipt Date: 20150601
  Transmission Date: 20150821
  Serious: Yes (Hospitalization, Other)
  Sender: FDA-Public Use
  Company Number: US-JNJFOC-20150510480

PATIENT
  Age: 71 Year
  Sex: Male

DRUGS (13)
  1. FOLIC ACID. [Concomitant]
     Active Substance: FOLIC ACID
  2. FISH OIL [Concomitant]
     Active Substance: FISH OIL
  3. IMBRUVICA [Suspect]
     Active Substance: IBRUTINIB
     Indication: MANTLE CELL LYMPHOMA
     Dosage: 560 UNK UNK
     Route: 048
     Dates: start: 20150331, end: 20150430
  4. ASPIRIN. [Concomitant]
     Active Substance: ASPIRIN
  5. IMBRUVICA [Suspect]
     Active Substance: IBRUTINIB
     Indication: PROSTATE CANCER
     Route: 048
     Dates: start: 20150408, end: 20150501
  6. PRILOSEC [Concomitant]
     Active Substance: OMEPRAZOLE MAGNESIUM
  7. CLOBETASOL [Concomitant]
     Active Substance: CLOBETASOL
     Indication: RASH
  8. PRAVACHOL [Concomitant]
     Active Substance: PRAVASTATIN SODIUM
  9. IMBRUVICA [Suspect]
     Active Substance: IBRUTINIB
     Indication: PROSTATE CANCER
     Dosage: 560 UNK UNK
     Route: 048
     Dates: start: 20150331, end: 20150430
  10. TRAMADOL [Concomitant]
     Active Substance: TRAMADOL
  11. IMBRUVICA [Suspect]
     Active Substance: IBRUTINIB
     Indication: MANTLE CELL LYMPHOMA
     Route: 048
     Dates: start: 20150408, end: 20150501
  12. MULTIVITAMINS [Concomitant]
     Active Substance: VITAMINS
  13. NIASPAN [Concomitant]
     Active Substance: NIACIN

REACTIONS (10)
  - Staphylococcal infection [Recovered/Resolved]
  - Delirium [Recovered/Resolved]
  - Headache [Unknown]
  - Rash [Recovered/Resolved]
  - Blister [Recovered/Resolved]
  - Lymphadenopathy [Recovering/Resolving]
  - Adverse event [Unknown]
  - Oropharyngeal pain [Recovered/Resolved]
  - Pyrexia [Recovered/Resolved]
  - Flushing [Unknown]

NARRATIVE: CASE EVENT DATE: 2015
